FAERS Safety Report 8438753-8 (Version None)
Quarter: 2012Q2

REPORT INFORMATION
  Report Type: 
  Country: None (occurrence: None)
  Receive Date: 20120608
  Receipt Date: 20120526
  Transmission Date: 20120825
  Serious: Yes (Other)
  Sender: FDA-Public Use
  Company Number: 1300497

PATIENT
  Age: 74 Year
  Sex: Male
  Weight: 90.3 kg

DRUGS (10)
  1. RITUXIMAB [Suspect]
     Indication: CHRONIC LYMPHOCYTIC LEUKAEMIA
     Dosage: 100 MG, DAY 1, 375 MG/M2 DAY 3 AND 5, AND DAYS 1 OF WEEK 5,9,13,17 AND 21
     Dates: start: 20120123, end: 20120417
  2. ACYCLOVIR [Concomitant]
  3. DIGOXIN [Concomitant]
  4. PENTOSTATIN [Suspect]
     Indication: CHRONIC LYMPHOCYTIC LEUKAEMIA
     Dosage: 4 MG/M2, ON DAY 1 OF EACH CYCLE
     Dates: start: 20120123, end: 20120417
  5. CYTOXAN [Suspect]
     Indication: CHRONIC LYMPHOCYTIC LEUKAEMIA
     Dosage: 600 MG/M2, ON DAY 1 OF EACH CYCLE
     Route: 042
     Dates: start: 20120123, end: 20120417
  6. ACTOS [Concomitant]
  7. SPIRIVA [Concomitant]
  8. AMILORIDE HCL AND HYDROCHLOROTHIAZIDE [Concomitant]
  9. LIPITOR [Concomitant]
  10. MULTIPLE VITAMINS [Concomitant]

REACTIONS (1)
  - CYSTITIS NONINFECTIVE [None]
